FAERS Safety Report 8027999-9 (Version None)
Quarter: 2012Q1

REPORT INFORMATION
  Report Type: 
  Country: None (occurrence: None)
  Receive Date: 20120106
  Receipt Date: 20110124
  Transmission Date: 20120608
  Serious: Yes (Death, Hospitalization)
  Sender: FDA-Public Use
  Company Number: US-MYLANLABS-2011S1001936

PATIENT
  Age: 51 Year
  Sex: Male

DRUGS (1)
  1. PHENYTOIN SODIUM CAP [Suspect]

REACTIONS (1)
  - STEVENS-JOHNSON SYNDROME [None]
